FAERS Safety Report 5075587-9 (Version None)
Quarter: 2006Q3

REPORT INFORMATION
  Report Type: 
  Country: None (occurrence: None)
  Receive Date: 20060809
  Receipt Date: 20060802
  Transmission Date: 20061208
  Serious: Yes (Other)
  Sender: FDA-Public Use
  Company Number: PHRM2006FR02298

PATIENT
  Age: 80 Year
  Sex: Male

DRUGS (3)
  1. EXELON [Suspect]
     Indication: DEMENTIA ALZHEIMER'S TYPE
     Dosage: 4.5 MG, BID
     Route: 048
  2. EFFEXOR [Suspect]
     Route: 048
  3. ANTI-PARKINSON AGENTS [Concomitant]
     Indication: TREMOR

REACTIONS (4)
  - AGGRESSION [None]
  - ANGER [None]
  - PARANOIA [None]
  - PSYCHOMOTOR HYPERACTIVITY [None]
